FAERS Safety Report 9769341 (Version 1)
Quarter: 2013Q4

REPORT INFORMATION
  Report Type: Spontaneous
  Country: US (occurrence: None)
  Receive Date: 20131217
  Receipt Date: 20131217
  Transmission Date: 20140711
  Serious: Yes (Disabling)
  Sender: FDA-Public Use
  Company Number: None

PATIENT
  Age: 72 Year
  Sex: Female
  Weight: 115 kg

DRUGS (6)
  1. CIPROFLOXACIN HCL [Suspect]
     Indication: CYSTITIS
     Route: 048
     Dates: start: 20131113, end: 20131118
  2. AMLODIPINE BESYLATE [Concomitant]
  3. CRESTOR [Concomitant]
  4. METOPROLOL SUCC-ER [Concomitant]
  5. CALCIUM [Concomitant]
  6. MULTI-VITAMIN [Concomitant]

REACTIONS (8)
  - Eye irritation [None]
  - Eye haemorrhage [None]
  - Muscular weakness [None]
  - Burning sensation [None]
  - Arthralgia [None]
  - Jaundice [None]
  - Full blood count decreased [None]
  - Ill-defined disorder [None]
